FAERS Safety Report 7898261-X (Version None)
Quarter: 2011Q4

REPORT INFORMATION
  Report Type: 
  Country: None (occurrence: None)
  Receive Date: 20111107
  Receipt Date: 20111027
  Transmission Date: 20120403
  Serious: Yes (Hospitalization)
  Sender: FDA-Public Use
  Company Number: FR-GLAXOSMITHKLINE-B0750688A

PATIENT
  Sex: Female

DRUGS (3)
  1. LAPATINIB [Suspect]
     Indication: BREAST CANCER METASTATIC
     Dosage: 1500MG PER DAY
     Route: 048
     Dates: start: 20110501, end: 20110806
  2. HERCEPTIN [Concomitant]
     Indication: BREAST CANCER METASTATIC
     Dosage: 300MG EVERY 3 WEEKS
     Route: 042
     Dates: start: 20110705
  3. FEMARA [Suspect]
     Indication: BREAST CANCER METASTATIC
     Dosage: 1UNIT PER DAY
     Route: 048
     Dates: start: 20110501, end: 20110801

REACTIONS (5)
  - RASH PRURITIC [None]
  - ASCITES [None]
  - JAUNDICE [None]
  - HEPATITIS CHOLESTATIC [None]
  - HEPATOMEGALY [None]
